FAERS Safety Report 7201904-7 (Version None)
Quarter: 2010Q4

REPORT INFORMATION
  Report Type: 
  Country: None (occurrence: None)
  Receive Date: 20101229
  Receipt Date: 20101224
  Transmission Date: 20110411
  Serious: No
  Sender: FDA-Public Use
  Company Number: JP-PFIZER INC-2010170897

PATIENT
  Age: 55 Year
  Sex: Female

DRUGS (3)
  1. LYRICA [Suspect]
     Dosage: 75 MG, 3X/DAY
     Dates: start: 20101108
  2. LYRICA [Suspect]
     Dosage: 150 MG, 2X/DAY
     Dates: start: 20101129
  3. LYRICA [Suspect]
     Dosage: 150 MG, 3X/DAY
     Dates: start: 20101213

REACTIONS (1)
  - ABDOMINAL DISCOMFORT [None]
